FAERS Safety Report 6752490-7 (Version None)
Quarter: 2010Q2

REPORT INFORMATION
  Report Type: 
  Country: None (occurrence: None)
  Receive Date: 20100602
  Receipt Date: 20100524
  Transmission Date: 20101027
  Serious: Yes (Hospitalization, Other)
  Sender: FDA-Public Use
  Company Number: US-AMGEN-KDL414008

PATIENT
  Sex: Female

DRUGS (3)
  1. ENBREL [Suspect]
     Indication: RHEUMATOID ARTHRITIS
  2. PREDNISONE [Concomitant]
  3. IMURAN [Concomitant]
     Dates: start: 20100205, end: 20100422

REACTIONS (8)
  - ASTHENIA [None]
  - CARDIAC DISORDER [None]
  - DEHYDRATION [None]
  - DYSPNOEA [None]
  - HAEMOGLOBIN DECREASED [None]
  - PSORIASIS [None]
  - RHEUMATOID ARTHRITIS [None]
  - SYNCOPE [None]
